FAERS Safety Report 8366753-5 (Version None)
Quarter: 2012Q1

REPORT INFORMATION
  Report Type: 
  Country: None (occurrence: None)
  Receive Date: 20120323
  Receipt Date: 20110722
  Transmission Date: 20120608
  Serious: Yes (Hospitalization)
  Sender: FDA-Public Use
  Company Number: 163-21880-11041310

PATIENT
  Age: 61 Year
  Sex: Female
  Weight: 86.3 kg

DRUGS (3)
  1. REVLIMID [Suspect]
  2. REVLIMID [Suspect]
  3. REVLIMID [Suspect]
     Indication: MULTIPLE MYELOMA
     Dosage: 10 MG, DAILY FOR 21Q28 DAYS, PO
     Route: 048
     Dates: start: 20090930

REACTIONS (5)
  - DIARRHOEA [None]
  - PNEUMONIA [None]
  - PYREXIA [None]
  - FATIGUE [None]
  - URINARY TRACT INFECTION [None]
